FAERS Safety Report 5769891-6 (Version None)
Quarter: 2008Q2

REPORT INFORMATION
  Report Type: 
  Country: None (occurrence: None)
  Receive Date: 20080613
  Receipt Date: 20080414
  Transmission Date: 20081010
  Serious: No
  Sender: FDA-Public Use
  Company Number: US-ABBOTT-08P-163-0447100-00

PATIENT
  Sex: Female
  Weight: 105 kg

DRUGS (1)
  1. HUMIRA [Suspect]
     Indication: PSORIATIC ARTHROPATHY
     Route: 058
     Dates: start: 20080404

REACTIONS (7)
  - BREATH ODOUR [None]
  - DRY MOUTH [None]
  - DYSGEUSIA [None]
  - HOT FLUSH [None]
  - HYPERHIDROSIS [None]
  - SKIN ODOUR ABNORMAL [None]
  - VISION BLURRED [None]
